FAERS Safety Report 5424161-0 (Version None)
Quarter: 2007Q3

REPORT INFORMATION
  Report Type: 
  Country: None (occurrence: None)
  Receive Date: 20070823
  Receipt Date: 20070811
  Transmission Date: 20080115
  Serious: Yes (Other)
  Sender: FDA-Public Use
  Company Number: PFIZER INC-2007067309

PATIENT
  Age: 57 Year
  Sex: Female
  Weight: 115 kg

DRUGS (3)
  1. NORVASC [Suspect]
     Indication: HYPERTENSION
     Route: 048
  2. CRESTOR [Concomitant]
  3. CLUSIVOL [Concomitant]

REACTIONS (3)
  - BLOOD PRESSURE INADEQUATELY CONTROLLED [None]
  - PAIN IN EXTREMITY [None]
  - URINARY TRACT INFECTION [None]
